FAERS Safety Report 5042869-6 (Version None)
Quarter: 2006Q3

REPORT INFORMATION
  Report Type: 
  Country: None (occurrence: None)
  Receive Date: 20060705
  Receipt Date: 20060628
  Transmission Date: 20061208
  Serious: Yes (Hospitalization)
  Sender: FDA-Public Use
  Company Number: FR-GLAXOSMITHKLINE-B0429152A

PATIENT
  Age: 37 Year
  Sex: Male

DRUGS (12)
  1. EPIVIR [Suspect]
     Indication: HIV INFECTION
     Route: 048
     Dates: end: 20060214
  2. CRIXIVAN [Suspect]
     Indication: HIV INFECTION
     Dosage: 800MG PER DAY
     Route: 048
     Dates: start: 20041015
  3. NORVIR [Suspect]
     Indication: HIV INFECTION
     Dosage: 200MG PER DAY
     Route: 048
  4. VIREAD [Suspect]
     Indication: HIV INFECTION
     Dosage: 250MG PER DAY
     Route: 048
     Dates: start: 20050131, end: 20060214
  5. ZERIT [Concomitant]
     Indication: HIV INFECTION
     Route: 065
     Dates: end: 20041001
  6. VIRACEPT [Concomitant]
     Indication: HIV INFECTION
     Route: 065
     Dates: start: 20050101, end: 20050614
  7. SUBUTEX [Concomitant]
     Route: 065
     Dates: end: 20030101
  8. NOVOMIX [Concomitant]
     Route: 065
  9. AVLOCARDYL LP 160 [Concomitant]
     Dosage: 160MG PER DAY
     Route: 065
  10. AERIUS [Concomitant]
     Dosage: 1TAB PER DAY
     Route: 065
  11. MIANSERINE [Concomitant]
     Dosage: 10MG PER DAY
     Route: 065
  12. FORTIMEL [Concomitant]
     Route: 065

REACTIONS (30)
  - ACID BASE BALANCE ABNORMAL [None]
  - ALPHA 1 GLOBULIN INCREASED [None]
  - ASCITES [None]
  - BLOOD BICARBONATE DECREASED [None]
  - BLOOD CALCIUM DECREASED [None]
  - BLOOD CHLORIDE DECREASED [None]
  - BLOOD POTASSIUM DECREASED [None]
  - BLOOD UREA DECREASED [None]
  - BLOOD URIC ACID DECREASED [None]
  - CANDIDA SEROLOGY POSITIVE [None]
  - CREATININE URINE DECREASED [None]
  - DIABETES MELLITUS INSULIN-DEPENDENT [None]
  - GASTRODUODENAL ULCER [None]
  - GENERAL PHYSICAL HEALTH DETERIORATION [None]
  - HEPATIC CIRRHOSIS [None]
  - HYPERGAMMAGLOBULINAEMIA [None]
  - HYPOALBUMINAEMIA [None]
  - HYPOCALCAEMIA [None]
  - HYPOCAPNIA [None]
  - HYPOXIA [None]
  - LEUKOCYTOSIS [None]
  - METABOLIC ACIDOSIS [None]
  - NEUTROPHILIA [None]
  - PANCREATITIS CHRONIC [None]
  - PRURITUS [None]
  - PYREXIA [None]
  - RALES [None]
  - RENAL DISORDER [None]
  - RENAL FAILURE [None]
  - STAPHYLOCOCCAL SEPSIS [None]
